FAERS Safety Report 9231077 (Version 2)
Quarter: 2013Q2

REPORT INFORMATION
  Report Type: Spontaneous
  Country: US (occurrence: None)
  Receive Date: 20121031
  Receipt Date: 20130107
  Transmission Date: 20140414
  Serious: Yes (Other)
  Sender: FDA-Public Use
  Company Number: PHEH2012US016166

PATIENT
  Age: 46 Year
  Sex: Female
  Weight: 74.8 kg

DRUGS (3)
  1. GILENYA [Suspect]
     Indication: MULTIPLE SCLEROSIS
     Route: 048
     Dates: start: 20120816
  2. GABAPENTIN (GABAPENTIN) [Concomitant]
  3. VENTOLIN (SALBUTAMOL) [Concomitant]

REACTIONS (4)
  - Somnolence [None]
  - Confusional state [None]
  - Fatigue [None]
  - Heart rate decreased [None]
